FAERS Safety Report 8343995-6 (Version None)
Quarter: 2012Q2

REPORT INFORMATION
  Report Type: 
  Country: None (occurrence: None)
  Receive Date: 20120508
  Receipt Date: 20120501
  Transmission Date: 20120825
  Serious: Yes (Other)
  Sender: FDA-Public Use
  Company Number: US-PFIZER INC-2012109023

PATIENT
  Sex: Male

DRUGS (11)
  1. DILANTIN [Suspect]
     Indication: CONVULSION
     Dosage: 300 MG, 1X/DAY
     Route: 048
     Dates: start: 20090110, end: 20090216
  2. LEVAQUIN [Concomitant]
     Dosage: 250 MG, UNK
  3. LIPITOR [Concomitant]
     Dosage: 80 MG, DAILY
     Route: 048
  4. ACETYLSALICYLIC ACID [Concomitant]
     Dosage: 325 MG, DAILY
  5. ZESTRIL [Concomitant]
     Dosage: 40 MG, DAILY
  6. LOPRESSOR [Concomitant]
     Dosage: 50 MG, 2X/DAY
  7. TYLENOL (CAPLET) [Concomitant]
     Dosage: UNK
  8. CARDIZEM [Concomitant]
     Dosage: 180 MG, DAILY
  9. ZETIA [Concomitant]
     Dosage: 10 MG, DAILY
  10. AMIODARONE [Concomitant]
     Dosage: 200 MG,DAILY
     Route: 048
  11. ZOLOFT [Concomitant]
     Indication: DEPRESSION
     Dosage: 150 MG, DAILY
     Route: 048

REACTIONS (1)
  - STEVENS-JOHNSON SYNDROME [None]
